FAERS Safety Report 5417015-7 (Version None)
Quarter: 2007Q3

REPORT INFORMATION
  Report Type: 
  Country: None (occurrence: None)
  Receive Date: 20070718
  Receipt Date: 20060607
  Transmission Date: 20080115
  Serious: Yes (Hospitalization)
  Sender: FDA-Public Use
  Company Number: 2006058411

PATIENT
  Age: 54 Year
  Sex: Male
  Weight: 129.2752 kg

DRUGS (5)
  1. CELEBREX [Suspect]
     Indication: BACK DISORDER
     Dosage: 1200 MG (400 MG,3 IN 1 D)
     Dates: start: 19980101
  2. NEURONTIN [Concomitant]
  3. ATIVAN [Concomitant]
  4. ZANTAC 150 [Concomitant]
  5. ZOCOR [Concomitant]

REACTIONS (7)
  - CHEST PAIN [None]
  - COUGH [None]
  - DEPRESSION [None]
  - HYPERHIDROSIS [None]
  - LOSS OF LIBIDO [None]
  - MYOCARDIAL INFARCTION [None]
  - PRESYNCOPE [None]
